FAERS Safety Report 6276347-3 (Version None)
Quarter: 2009Q3

REPORT INFORMATION
  Report Type: 
  Country: None (occurrence: None)
  Receive Date: 20090720
  Receipt Date: 20090720
  Transmission Date: 20100115
  Serious: Yes (Hospitalization)
  Sender: FDA-Public Use
  Company Number: None

PATIENT
  Age: 67 Year
  Sex: Male
  Weight: 90.3 kg

DRUGS (1)
  1. METOPROLOL TARTRATE [Suspect]
     Indication: HYPERTENSION
     Dosage: 20 MG BID PO
     Route: 048
     Dates: start: 20061121, end: 20090716

REACTIONS (1)
  - BRADYCARDIA [None]
